FAERS Safety Report 12705423 (Version 3)
Quarter: 2016Q3

REPORT INFORMATION
  Report Type: Spontaneous
  Country: US (occurrence: UA)
  Receive Date: 20160901
  Receipt Date: 20160906
  Transmission Date: 20161109
  Serious: Yes (Death, Hospitalization, Other)
  Sender: FDA-Public Use
  Company Number: US-ROCHE-1820537

PATIENT
  Sex: Female

DRUGS (1)
  1. AVASTIN [Suspect]
     Active Substance: BEVACIZUMAB
     Indication: UTERINE CANCER
     Route: 065
     Dates: start: 201602

REACTIONS (5)
  - Impaired healing [Unknown]
  - Death [Fatal]
  - Gastrointestinal disorder [Unknown]
  - Intestinal fistula [Unknown]
  - Intestinal perforation [Unknown]
